FAERS Safety Report 5012394-7 (Version None)
Quarter: 2006Q2

REPORT INFORMATION
  Report Type: 
  Country: None (occurrence: None)
  Receive Date: 20060414
  Receipt Date: 20060117
  Transmission Date: 20061013
  Serious: No
  Sender: FDA-Public Use
  Company Number: 2006SP000292

PATIENT
  Age: 68 Year
  Sex: Male
  Weight: 99.7913 kg

DRUGS (3)
  1. LUNESTA [Suspect]
     Indication: INITIAL INSOMNIA
     Dosage: 2 MG;HS;ORAL
     Route: 048
     Dates: start: 20051101
  2. CITALOPRAM HYDROBROMIDE [Concomitant]
  3. TRAZODONE HCL [Concomitant]

REACTIONS (1)
  - DRUG EFFECT DECREASED [None]
